FAERS Safety Report 8789285 (Version 1)
Quarter: 2012Q4

REPORT INFORMATION
  Report Type: Spontaneous
  Country: US (occurrence: None)
  Receive Date: 20120910
  Receipt Date: 20120910
  Transmission Date: 20130627
  Serious: Yes (Disabling, Other)
  Sender: FDA-Public Use
  Company Number: None

PATIENT
  Age: 59 Year
  Sex: Male
  Weight: 77.11 kg

DRUGS (1)
  1. DUREZOL [Suspect]
     Indication: CATARACT OPERATION
     Route: 047
     Dates: start: 20120301, end: 20120315

REACTIONS (2)
  - Optic ischaemic neuropathy [None]
  - Intraocular pressure increased [None]
